FAERS Safety Report 5133227-4 (Version None)
Quarter: 2006Q4

REPORT INFORMATION
  Report Type: 
  Country: None (occurrence: None)
  Receive Date: 20061018
  Receipt Date: 20061009
  Transmission Date: 20070319
  Serious: Yes (Other)
  Sender: FDA-Public Use
  Company Number: 2006-07-0149

PATIENT
  Age: 28 Year
  Sex: Female
  Weight: 72 kg

DRUGS (3)
  1. PEG-INTRON [Suspect]
     Indication: MALIGNANT MELANOMA
     Dosage: SEE IMAGE
     Route: 058
     Dates: end: 20020606
  2. PEG-INTRON [Suspect]
     Indication: MALIGNANT MELANOMA
     Dosage: SEE IMAGE
     Route: 058
     Dates: start: 20020531
  3. PEG-INTRON [Suspect]
     Indication: MALIGNANT MELANOMA
     Dosage: SEE IMAGE
     Route: 058
     Dates: start: 20020726

REACTIONS (2)
  - ALANINE AMINOTRANSFERASE INCREASED [None]
  - ASPARTATE AMINOTRANSFERASE INCREASED [None]
